FAERS Safety Report 8869750 (Version 1)
Quarter: 2012Q4

REPORT INFORMATION
  Report Type: 
  Country: JP (occurrence: JP)
  Receive Date: 20121028
  Receipt Date: 20121028
  Transmission Date: 20130627
  Serious: Yes (Hospitalization)
  Sender: FDA-Public Use
  Company Number: JP-009507513-1210JPN011501

PATIENT
  Age: 42 Year
  Sex: Male
  Weight: 75 kg

DRUGS (11)
  1. PEGINTRON [Suspect]
     Indication: HEPATITIS C
     Dosage: 1.3 Microgram per kilogram, qw
     Route: 058
  2. REBETOL [Suspect]
     Indication: HEPATITIS C
     Dosage: 800 mg, qd
     Route: 048
     Dates: end: 20120917
  3. REBETOL [Suspect]
     Dosage: 400 mg, qd
     Route: 048
     Dates: start: 20120918
  4. TELAVIC [Suspect]
     Indication: HEPATITIS C
     Dosage: 2250 mg, qd
     Route: 048
     Dates: start: 20120813
  5. TALION (BEPOTASTINE BESYLATE) [Concomitant]
     Indication: SKIN DISORDER
     Dosage: 20 mg, qd
     Route: 048
     Dates: start: 20120814, end: 20120820
  6. NEOMALLERMIN TR [Concomitant]
     Indication: SKIN DISORDER
     Dosage: 12 mg, qd
     Route: 048
     Dates: start: 20120814, end: 20120820
  7. LOXONIN [Concomitant]
     Indication: PYREXIA
     Dosage: 60 mg a day/as needed
     Route: 048
     Dates: start: 20120815
  8. FAMOTIDINE [Concomitant]
     Indication: PROPHYLAXIS
     Dosage: 20 mg, qd
     Route: 048
     Dates: start: 20120815
  9. EVAMYL [Concomitant]
     Indication: INSOMNIA
     Dosage: 1 per day,as needed
     Route: 048
     Dates: start: 20120816
  10. ALLELOCK [Concomitant]
     Indication: SKIN DISORDER
     Dosage: 10 mg, qd
     Route: 048
     Dates: start: 20120821
  11. ATARAX (HYDROXYZINE HYDROCHLORIDE) [Concomitant]
     Indication: SKIN DISORDER
     Dosage: 30 mg, qd
     Route: 048
     Dates: start: 20120821

REACTIONS (2)
  - Erythema [Recovering/Resolving]
  - Pruritus [Recovering/Resolving]
